FAERS Safety Report 24196126 (Version 2)
Quarter: 2024Q3

REPORT INFORMATION
  Report Type: Spontaneous
  Country: IT (occurrence: IT)
  Receive Date: 20240809
  Receipt Date: 20240819
  Transmission Date: 20241017
  Serious: Yes (Life-Threatening, Hospitalization, Other)
  Sender: BRISTOL MYERS SQUIBB
  Company Number: None

PATIENT
  Age: 62 Year
  Sex: Male

DRUGS (8)
  1. OPDIVO [Suspect]
     Active Substance: NIVOLUMAB
     Indication: Oesophageal adenocarcinoma stage IV
     Dosage: 240 MG EVERY 14 DAYS IN COMBINATION WITH FOLOFOX
     Route: 042
     Dates: start: 20231110, end: 20240417
  2. OXALIPLATIN [Suspect]
     Active Substance: OXALIPLATIN
     Indication: Oesophageal adenocarcinoma stage IV
     Dosage: 100 MG/M2 EVERY 14 DAYS, DOSE REDUCED BY 40%
     Route: 042
     Dates: start: 20231011, end: 20240417
  3. FLUOROURACIL [Suspect]
     Active Substance: FLUOROURACIL
     Indication: Oesophageal adenocarcinoma stage IV
     Dosage: 5-FU BOLUS 400MG/SQM G1 / 5-FU I.C. 2400MG/SQM FOR 44 HOURS EVERY 14 DAYS, DOSE REDUCED BY 40%
     Route: 042
     Dates: start: 20231013, end: 20240417
  4. FLUOROURACIL [Suspect]
     Active Substance: FLUOROURACIL
     Dosage: 5-FU BOLUS 400MG/SQM G1 / 5-FU I.C. 2400MG/SQM FOR 44 HOURS EVERY 14 DAYS, DOSE REDUCED BY 40%
     Route: 042
  5. CEFTRIAXONE [Concomitant]
     Active Substance: CEFTRIAXONE\CEFTRIAXONE SODIUM
     Indication: Product used for unknown indication
  6. MEROPENEM [Concomitant]
     Active Substance: MEROPENEM
     Indication: Product used for unknown indication
  7. LINEZOLID [Concomitant]
     Active Substance: LINEZOLID
     Indication: Product used for unknown indication
  8. CLARITHROMYCIN [Concomitant]
     Active Substance: CLARITHROMYCIN
     Indication: Product used for unknown indication

REACTIONS (13)
  - Cerebral ischaemia [Recovering/Resolving]
  - Generalised tonic-clonic seizure [Recovering/Resolving]
  - Oxygen saturation decreased [Recovering/Resolving]
  - Autoimmune hypothyroidism [Recovering/Resolving]
  - Thrombocytopenia [Recovered/Resolved]
  - Cardiomyopathy [Recovering/Resolving]
  - Autoimmune lung disease [Recovering/Resolving]
  - Dysgeusia [Unknown]
  - Nausea [Unknown]
  - Abdominal pain [Unknown]
  - Acute respiratory failure [Unknown]
  - Clostridium difficile colitis [Unknown]
  - Diaphragmatic hernia [Unknown]

NARRATIVE: CASE EVENT DATE: 20231101
